FAERS Safety Report 15331798 (Version 1)
Quarter: 2018Q3

REPORT INFORMATION
  Report Type: Spontaneous
  Country: US (occurrence: US)
  Receive Date: 20180829
  Receipt Date: 20180829
  Transmission Date: 20181010
  Serious: Yes (Hospitalization, Other)
  Sender: FDA-Public Use
  Company Number: US-OTSUKA-2018_025509

PATIENT
  Sex: Female

DRUGS (5)
  1. ABILIFY [Suspect]
     Active Substance: ARIPIPRAZOLE
     Dosage: 15 MG, QD
     Route: 065
  2. ABILIFY [Suspect]
     Active Substance: ARIPIPRAZOLE
     Dosage: 20 MG, QD
     Route: 065
  3. ABILIFY [Suspect]
     Active Substance: ARIPIPRAZOLE
     Indication: SCHIZOAFFECTIVE DISORDER
     Dosage: 10 MG, QD
     Route: 065
     Dates: start: 2004
  4. ABILIFY [Suspect]
     Active Substance: ARIPIPRAZOLE
     Dosage: 45 MG, QD
     Route: 065
     Dates: end: 201606
  5. ABILIFY [Suspect]
     Active Substance: ARIPIPRAZOLE
     Dosage: 30 MG, QD
     Route: 065

REACTIONS (17)
  - Eating disorder [Not Recovered/Not Resolved]
  - Compulsive shopping [Not Recovered/Not Resolved]
  - Mental disorder [Unknown]
  - Suicide attempt [Not Recovered/Not Resolved]
  - Weight increased [Unknown]
  - Injury [Unknown]
  - Trichotillomania [Not Recovered/Not Resolved]
  - Neuropsychiatric symptoms [Unknown]
  - Sexual dysfunction [Not Recovered/Not Resolved]
  - Economic problem [Unknown]
  - Emotional distress [Unknown]
  - Compulsive sexual behaviour [Not Recovered/Not Resolved]
  - Suicidal ideation [Not Recovered/Not Resolved]
  - Obsessive-compulsive disorder [Not Recovered/Not Resolved]
  - Sexually transmitted disease [Unknown]
  - Obsessive thoughts [Not Recovered/Not Resolved]
  - Dermatillomania [Not Recovered/Not Resolved]

NARRATIVE: CASE EVENT DATE: 20160107
